FAERS Safety Report 12939842 (Version 1)
Quarter: 2016Q4

REPORT INFORMATION
  Report Type: Other
  Country: US (occurrence: US)
  Receive Date: 20161115
  Receipt Date: 20161115
  Transmission Date: 20170207
  Serious: Yes (Hospitalization)
  Sender: FDA-Public Use
  Company Number: US-SHIRE-US201616294

PATIENT
  Sex: Female
  Weight: 49.89 kg

DRUGS (1)
  1. GATTEX [Suspect]
     Active Substance: TEDUGLUTIDE\WATER
     Indication: MALABSORPTION
     Dosage: 0.45 MG, UNKNOWN
     Route: 058
     Dates: start: 20160907

REACTIONS (1)
  - Bacterial infection [Unknown]
